FAERS Safety Report 4403744-0 (Version None)
Quarter: 2004Q3

REPORT INFORMATION
  Report Type: 
  Country: None (occurrence: None)
  Receive Date: 20040719
  Receipt Date: 20040703
  Transmission Date: 20050211
  Serious: Yes (Disabling)
  Sender: FDA-Public Use
  Company Number: 200404142

PATIENT
  Age: 65 Year
  Sex: Male
  Weight: 64.4108 kg

DRUGS (7)
  1. BOTOX [Suspect]
     Indication: ARTHRALGIA
     Dosage: 100 UNITS PRN IM
     Dates: start: 20040405, end: 20040405
  2. BOTOX [Suspect]
     Indication: BACK PAIN
     Dosage: 100 UNITS PRN IM
     Dates: start: 20040405, end: 20040405
  3. BOTOX [Suspect]
     Indication: NECK PAIN
     Dosage: 100 UNITS PRN IM
     Dates: start: 20040405, end: 20040405
  4. SOMA [Concomitant]
  5. OXYCODONE HCL [Concomitant]
  6. HYDROMORPHONE HCL [Concomitant]
  7. CLONIDINE HCL [Concomitant]

REACTIONS (5)
  - BURNING SENSATION [None]
  - CONDITION AGGRAVATED [None]
  - IMPAIRED WORK ABILITY [None]
  - INTERVERTEBRAL DISC DEGENERATION [None]
  - PAIN [None]
